FAERS Safety Report 25193678 (Version 2)
Quarter: 2025Q2

REPORT INFORMATION
  Report Type: Spontaneous
  Country: PL (occurrence: PL)
  Receive Date: 20250414
  Receipt Date: 20250429
  Transmission Date: 20250716
  Serious: Yes (Hospitalization, Other)
  Sender: ELI LILLY AND COMPANY
  Company Number: PL-ELI_LILLY_AND_COMPANY-PL202309002510

PATIENT
  Age: 66 Year
  Sex: Female

DRUGS (8)
  1. ABEMACICLIB [Suspect]
     Active Substance: ABEMACICLIB
     Indication: Product used for unknown indication
     Dosage: 150 MG, BID
     Route: 048
     Dates: start: 20230801
  2. ABEMACICLIB [Suspect]
     Active Substance: ABEMACICLIB
     Dosage: 150 MG, BID
     Route: 048
     Dates: start: 20230912
  3. ABEMACICLIB [Suspect]
     Active Substance: ABEMACICLIB
     Dosage: 100 MG, BID
     Route: 048
     Dates: start: 20231010, end: 20231214
  4. ABEMACICLIB [Suspect]
     Active Substance: ABEMACICLIB
     Dosage: 100 MG, BID
     Route: 065
     Dates: start: 20240102
  5. LETROZOLE [Suspect]
     Active Substance: LETROZOLE
     Indication: Product used for unknown indication
     Dosage: 2.5 MG, DAILY
     Route: 065
     Dates: start: 202308
  6. ANASTROZOLE [Concomitant]
     Active Substance: ANASTROZOLE
     Indication: Product used for unknown indication
     Dosage: 1 MG, DAILY
     Dates: start: 20230912
  7. ANASTROZOLE [Concomitant]
     Active Substance: ANASTROZOLE
     Dosage: 1 MG, DAILY
     Dates: start: 20231010
  8. ZOLEDRONIC ACID [Concomitant]
     Active Substance: ZOLEDRONIC ACID
     Indication: Malignant neoplasm progression
     Dates: start: 20230727

REACTIONS (7)
  - Urosepsis [Recovering/Resolving]
  - Respiratory tract infection [Recovering/Resolving]
  - Malignant neoplasm progression [Unknown]
  - Urticaria [Recovering/Resolving]
  - Lung opacity [Unknown]
  - Transaminases increased [Unknown]
  - Rash pruritic [Recovering/Resolving]

NARRATIVE: CASE EVENT DATE: 20231201
